FAERS Safety Report 10185898 (Version 5)
Quarter: 2014Q4

REPORT INFORMATION
  Report Type: Report from Study
  Country: US (occurrence: US)
  Receive Date: 20140521
  Receipt Date: 20141014
  Transmission Date: 20150528
  Serious: Yes (Hospitalization)
  Sender: FDA-Public Use
  Company Number: US-ACTELION-A-NJ2014-99047

PATIENT
  Age: 57 Year
  Sex: Female

DRUGS (2)
  1. TRACLEER [Suspect]
     Active Substance: BOSENTAN\BOSENTAN MONOHYDRATE
     Indication: PULMONARY ARTERIAL HYPERTENSION
     Dosage: UNK
     Route: 048
  2. ADCIRCA [Concomitant]
     Active Substance: TADALAFIL

REACTIONS (14)
  - Staphylococcal infection [Unknown]
  - Laryngeal polypectomy [Unknown]
  - Polyp [Unknown]
  - Drug dose omission [Unknown]
  - Pulmonary haemorrhage [Unknown]
  - Arthroscopy [Unknown]
  - Tracheal haemorrhage [Unknown]
  - Scar [Unknown]
  - Tracheal injury [Unknown]
  - Joint swelling [Unknown]
  - Skin erosion [Unknown]
  - Mental disorder [Unknown]
  - Tracheostomy [Unknown]
  - Gastrostomy [Unknown]

NARRATIVE: CASE EVENT DATE: 20140425
